FAERS Safety Report 25664636 (Version 1)
Quarter: 2025Q3

REPORT INFORMATION
  Report Type: Spontaneous
  Country: BY (occurrence: BY)
  Receive Date: 20250811
  Receipt Date: 20250811
  Transmission Date: 20251020
  Serious: Yes (Death)
  Sender: JOHNSON AND JOHNSON
  Company Number: BY-JNJFOC-20250810037

PATIENT
  Sex: Male
  Weight: 35 kg

DRUGS (5)
  1. BEDAQUILINE [Suspect]
     Active Substance: BEDAQUILINE
     Indication: Tuberculosis
     Dosage: FOR 2 WEEKS.
     Route: 048
     Dates: start: 20240130, end: 20240723
  2. BEDAQUILINE [Suspect]
     Active Substance: BEDAQUILINE
     Route: 048
     Dates: start: 20240130, end: 20240723
  3. PRETOMANID [Suspect]
     Active Substance: PRETOMANID
     Indication: Antibiotic prophylaxis
     Route: 048
     Dates: start: 20240130, end: 20240723
  4. LINEZOLID [Suspect]
     Active Substance: LINEZOLID
     Indication: Tuberculosis
     Route: 048
     Dates: start: 20240130, end: 20240723
  5. CLOFAZIMINE [Suspect]
     Active Substance: CLOFAZIMINE
     Indication: Antibiotic prophylaxis
     Dates: start: 20240130, end: 20240723

REACTIONS (1)
  - Prostate cancer [Fatal]

NARRATIVE: CASE EVENT DATE: 20250627
